FAERS Safety Report 9514801 (Version 3)
Quarter: 2013Q4

REPORT INFORMATION
  Report Type: Spontaneous
  Country: KR (occurrence: KR)
  Receive Date: 20130911
  Receipt Date: 20131011
  Transmission Date: 20140711
  Serious: Yes (Other)
  Sender: FDA-Public Use
  Company Number: KR-ROCHE-1267544

PATIENT
  Age: 61 Year
  Sex: Female

DRUGS (3)
  1. MIRCERA [Suspect]
     Indication: NEPHROGENIC ANAEMIA
     Route: 058
     Dates: start: 201306
  2. MIRCERA [Suspect]
     Route: 058
     Dates: start: 201307
  3. MIRCERA [Suspect]
     Route: 058
     Dates: start: 201308

REACTIONS (1)
  - Haemoglobin decreased [Recovered/Resolved]
